FAERS Safety Report 6602295-2 (Version None)
Quarter: 2010Q1

REPORT INFORMATION
  Report Type: 
  Country: None (occurrence: None)
  Receive Date: 20100225
  Receipt Date: 20100217
  Transmission Date: 20100710
  Serious: Yes (Hospitalization)
  Sender: FDA-Public Use
  Company Number: BE-WATSON-2010-01927

PATIENT
  Age: 35 Year
  Sex: Male

DRUGS (2)
  1. DISULFIRAM [Suspect]
     Indication: ALCOHOLISM
     Dosage: 20 G, SINGLE
     Route: 048
     Dates: start: 20000101
  2. DISULFIRAM [Suspect]
     Indication: SUICIDE ATTEMPT

REACTIONS (3)
  - COMA [None]
  - CONVULSION [None]
  - INTENTIONAL OVERDOSE [None]
